FAERS Safety Report 6059064-4 (Version None)
Quarter: 2009Q1

REPORT INFORMATION
  Report Type: 
  Country: None (occurrence: None)
  Receive Date: 20090130
  Receipt Date: 20090121
  Transmission Date: 20090719
  Serious: Yes (Hospitalization)
  Sender: FDA-Public Use
  Company Number: B0555327A

PATIENT
  Age: 95 Year
  Sex: Female

DRUGS (12)
  1. AUGMENTIN '125' [Suspect]
     Dosage: 1G TWICE PER DAY
     Route: 048
     Dates: start: 20080627, end: 20080704
  2. FLAGYL [Suspect]
     Dosage: 250MG FOUR TIMES PER DAY
     Route: 048
     Dates: start: 20080707, end: 20080716
  3. PREVISCAN [Suspect]
     Dosage: .25UNIT PER DAY
     Route: 048
     Dates: start: 20070625, end: 20080714
  4. HEMIGOXINE [Concomitant]
     Route: 065
  5. LEVOTHYROX [Concomitant]
     Dosage: 100MCG PER DAY
     Route: 065
  6. ATARAX [Concomitant]
     Dosage: 12.5MG PER DAY
     Route: 065
     Dates: start: 20060426
  7. LASILIX [Concomitant]
     Dosage: 40MG PER DAY
     Route: 065
     Dates: start: 20060426
  8. DUSPATALIN [Concomitant]
     Route: 065
     Dates: start: 20060426
  9. ATHYMIL [Concomitant]
     Dosage: 10MG TWICE PER DAY
     Route: 065
     Dates: start: 20060613
  10. MOGADON [Concomitant]
     Route: 065
     Dates: start: 20080201
  11. HALDOL [Concomitant]
     Dosage: 6DROP PER DAY
     Route: 065
     Dates: start: 20080201
  12. POTASSIUM CHLORIDE [Concomitant]
     Dates: start: 20080710

REACTIONS (9)
  - CLOSTRIDIUM DIFFICILE COLITIS [None]
  - DIARRHOEA [None]
  - DRUG INTERACTION [None]
  - HYPONATRAEMIA [None]
  - INTERNATIONAL NORMALISED RATIO INCREASED [None]
  - LEUKOCYTOSIS [None]
  - MUCOUS STOOLS [None]
  - PSEUDOMEMBRANOUS COLITIS [None]
  - RECTAL HAEMORRHAGE [None]
